FAERS Safety Report 11717830 (Version 4)
Quarter: 2016Q1

REPORT INFORMATION
  Report Type: Spontaneous
  Country: JP (occurrence: JP)
  Receive Date: 20151110
  Receipt Date: 20160127
  Transmission Date: 20160525
  Serious: Yes (Hospitalization, Other)
  Sender: FDA-Public Use
  Company Number: JP-AMGEN-JPNSP2015118425

PATIENT
  Age: 68 Year
  Sex: Male
  Weight: 54 kg

DRUGS (7)
  1. DEXART [Suspect]
     Active Substance: DEXAMETHASONE SODIUM PHOSPHATE
     Dosage: 13.2 MG, QD
     Route: 042
     Dates: start: 20140406, end: 20140406
  2. TS-1 [Concomitant]
     Active Substance: GIMERACIL\OTERACIL\TEGAFUR
     Indication: COLON CANCER
     Dosage: 50 MG, BID
     Route: 048
     Dates: start: 20140404, end: 20140405
  3. VECTIBIX [Suspect]
     Active Substance: PANITUMUMAB
     Indication: COLON CANCER
     Dosage: 9 MG/KG, Q2WEEKS
     Route: 041
     Dates: start: 20140404, end: 20140404
  4. DEXART [Suspect]
     Active Substance: DEXAMETHASONE SODIUM PHOSPHATE
     Indication: PROPHYLAXIS OF NAUSEA AND VOMITING
     Dosage: 13.2 MG, QD
     Route: 042
     Dates: start: 20140404, end: 20140404
  5. IRINOTECAN HYDROCHLORIDE. [Concomitant]
     Active Substance: IRINOTECAN HYDROCHLORIDE
     Indication: COLON CANCER
     Dosage: 250 MG, Q3WK
     Route: 041
     Dates: start: 20140404, end: 20140404
  6. ATROPINE SULFATE. [Concomitant]
     Active Substance: ATROPINE SULFATE
     Indication: PROPHYLAXIS
     Dosage: 0.25 MG, QD
     Route: 042
     Dates: start: 20140404, end: 20140404
  7. ALOXI [Concomitant]
     Active Substance: PALONOSETRON HYDROCHLORIDE
     Indication: PROPHYLAXIS OF NAUSEA AND VOMITING
     Dosage: 0.75 MG, QD
     Route: 042
     Dates: start: 20140404, end: 20140404

REACTIONS (2)
  - Vomiting [Unknown]
  - Pancreatitis acute [Recovered/Resolved with Sequelae]

NARRATIVE: CASE EVENT DATE: 20140405
